FAERS Safety Report 5375265-2 (Version None)
Quarter: 2007Q2

REPORT INFORMATION
  Report Type: 
  Country: None (occurrence: None)
  Receive Date: 20070629
  Receipt Date: 20061002
  Transmission Date: 20071010
  Serious: No
  Sender: FDA-Public Use
  Company Number: US-ASTRAZENECA-2006UW19094

PATIENT
  Age: 50 Year
  Sex: Female

DRUGS (3)
  1. NOLVADEX [Suspect]
     Indication: BREAST CANCER
     Route: 048
     Dates: start: 20060910
  2. HYDROXYCHLOROQUINE SULFATE [Concomitant]
  3. LORAZEPAM [Concomitant]
     Indication: ANXIETY
     Dosage: PRN
     Dates: start: 20060928

REACTIONS (1)
  - DYSPNOEA [None]
